FAERS Safety Report 10088439 (Version 1)
Quarter: 2014Q2

REPORT INFORMATION
  Report Type: Spontaneous
  Country: US (occurrence: US)
  Receive Date: 20140421
  Receipt Date: 20140421
  Transmission Date: 20141212
  Serious: No
  Sender: FDA-Public Use
  Company Number: US-BIOGENIDEC-2014BI031532

PATIENT
  Age: 52 Year
  Sex: Female
  Weight: 74 kg

DRUGS (18)
  1. TECFIDERA [Suspect]
     Indication: MULTIPLE SCLEROSIS
     Dates: start: 201306
  2. AVONEX [Concomitant]
     Indication: MULTIPLE SCLEROSIS
  3. ASPIRIN [Concomitant]
  4. TOPIRAMATE [Concomitant]
  5. TOPIRAMATE [Concomitant]
  6. CYCLOBENZAPRINE [Concomitant]
  7. FLUCONAZOLE [Concomitant]
     Route: 048
  8. SCOPOLAMINE [Concomitant]
  9. TEMAZEPAM [Concomitant]
     Route: 048
  10. COPAXONE [Concomitant]
     Route: 058
     Dates: start: 20111025, end: 20130815
  11. PREDNISONE [Concomitant]
  12. XANAX [Concomitant]
     Indication: ANXIETY
  13. GILENYA [Concomitant]
  14. LEVOTHYROXINE [Concomitant]
     Route: 048
  15. KENALOG [Concomitant]
     Dates: start: 20131010
  16. ALPRAZOLAM [Concomitant]
     Route: 048
  17. SEROQUEL [Concomitant]
     Route: 048
  18. LORAZEPAM [Concomitant]
     Route: 048

REACTIONS (6)
  - Panic reaction [Unknown]
  - Headache [Unknown]
  - Malaise [Unknown]
  - Adverse drug reaction [Unknown]
  - Hot flush [Unknown]
  - White blood cell count decreased [Unknown]
